FAERS Safety Report 9321280 (Version 1)
Quarter: 2013Q2

REPORT INFORMATION
  Report Type: Spontaneous
  Country: CN (occurrence: CN)
  Receive Date: 20130531
  Receipt Date: 20130531
  Transmission Date: 20140414
  Serious: Yes (Other)
  Sender: FDA-Public Use
  Company Number: CN-BAYER-2013-066607

PATIENT
  Sex: Male
  Weight: 67.3 kg

DRUGS (2)
  1. ADALAT GITS [Suspect]
     Route: 048
  2. GLUCOBAY [Suspect]
     Indication: DIABETES MELLITUS
     Route: 048

REACTIONS (2)
  - Diabetes mellitus [None]
  - Weight decreased [None]
